FAERS Safety Report 8707203 (Version 4)
Quarter: 2012Q4

REPORT INFORMATION
  Report Type: 
  Country: NL (occurrence: NL)
  Receive Date: 20120803
  Receipt Date: 20120907
  Transmission Date: 20130627
  Serious: Yes (Hospitalization)
  Sender: FDA-Public Use
  Company Number: NL-PFIZER INC-2012146109

PATIENT
  Age: 74 Year
  Sex: Male

DRUGS (7)
  1. ATORVASTATIN PFIZER [Suspect]
     Indication: HYPERCHOLESTEROLAEMIA
     Dosage: 20 mg, UNK
     Route: 048
     Dates: start: 20120428, end: 20120620
  2. METOPROLOL [Concomitant]
     Indication: HYPERTENSION
     Dosage: 25 mg, UNK
     Route: 048
  3. PERINDOPRIL [Concomitant]
     Dosage: 8 mg, UNK
     Dates: start: 20110216
  4. TAMSUSOLINE [Concomitant]
     Indication: PROSTATIC DISORDER
     Dosage: 0.4 mg, UNK
     Dates: start: 20101111
  5. CARBASALATE [Concomitant]
     Dosage: 80 mg, UNK
     Dates: start: 20101207
  6. GLUCOSAMINE [Concomitant]
     Dosage: ^100^, UNK
  7. ESOMEPRAZOLE [Concomitant]
     Dosage: UNK
     Dates: start: 20110216

REACTIONS (7)
  - Musculoskeletal stiffness [Recovered/Resolved]
  - Gait disturbance [Recovered/Resolved]
  - Pain [Recovered/Resolved]
  - Paraesthesia [Recovered/Resolved]
  - Myalgia [Recovered/Resolved]
  - Arthralgia [Recovered/Resolved]
  - Posture abnormal [Recovered/Resolved]
